FAERS Safety Report 9961489 (Version 1)
Quarter: 2014Q1

REPORT INFORMATION
  Report Type: Spontaneous
  Country: US (occurrence: None)
  Receive Date: 20140304
  Receipt Date: 20140304
  Transmission Date: 20141002
  Serious: Yes (Hospitalization)
  Sender: FDA-Public Use
  Company Number: None

PATIENT
  Age: 55 Year
  Sex: Male
  Weight: 87.3 kg

DRUGS (1)
  1. SUCCINYLCHOLINE [Suspect]
     Dates: start: 20131209, end: 20131209

REACTIONS (1)
  - Sedation [None]
